FAERS Safety Report 6766471-0 (Version None)
Quarter: 2010Q2

REPORT INFORMATION
  Report Type: 
  Country: None (occurrence: None)
  Receive Date: 20100611
  Receipt Date: 20100603
  Transmission Date: 20101027
  Serious: Yes (Death)
  Sender: FDA-Public Use
  Company Number: GXKR2010IT06236

PATIENT
  Sex: Male

DRUGS (1)
  1. CLOZAPINE [Suspect]
     Route: 065

REACTIONS (4)
  - ANAEMIA [None]
  - DEATH [None]
  - PULMONARY EMBOLISM [None]
  - PYREXIA [None]
